FAERS Safety Report 7487633-3 (Version None)
Quarter: 2011Q2

REPORT INFORMATION
  Report Type: 
  Country: None (occurrence: None)
  Receive Date: 20110518
  Receipt Date: 20070730
  Transmission Date: 20111010
  Serious: Yes (Death)
  Sender: FDA-Public Use
  Company Number: US-BAYER-200711598BWH

PATIENT
  Age: 52 Year
  Sex: Male
  Weight: 73 kg

DRUGS (12)
  1. TRASYLOL [Suspect]
     Indication: COX-MAZE PROCEDURE
  2. DIOVAN [Concomitant]
     Dosage: 160 MG DAILY
     Route: 048
     Dates: start: 20041013
  3. RED BLOOD CELLS [Concomitant]
  4. HEPARIN [Concomitant]
  5. METOPROLOL SUCCINATE [Concomitant]
     Dosage: 50 MG
  6. ACETYLSALICYLIC ACID SRT [Concomitant]
  7. TRASYLOL [Suspect]
     Indication: CARDIAC OPERATION
     Dosage: INITIAL TEST  DOSE OF 1 ML, LOADING DOSE OF 200
     Route: 042
     Dates: start: 20050216, end: 20050216
  8. DIGOXIN [Concomitant]
     Dosage: 0.25 MG
  9. NORVASC [Concomitant]
     Dosage: 2.5 MG DAILY
     Route: 048
     Dates: start: 20041117
  10. INSULIN [Concomitant]
  11. PLASMA [Concomitant]
     Dosage: UNK
     Dates: start: 20050216
  12. PLATELETS [Concomitant]
     Dosage: 6 U, UNK
     Dates: start: 20050216

REACTIONS (2)
  - DEATH [None]
  - INJURY [None]
